FAERS Safety Report 4685885-6 (Version None)
Quarter: 2005Q2

REPORT INFORMATION
  Report Type: 
  Country: None (occurrence: None)
  Receive Date: 20050609
  Receipt Date: 20050602
  Transmission Date: 20051028
  Serious: Yes (Other)
  Sender: FDA-Public Use
  Company Number: PHEH2005US06244

PATIENT
  Age: 76 Year
  Sex: Female

DRUGS (1)
  1. AREDIA [Suspect]

REACTIONS (6)
  - ASEPTIC NECROSIS BONE [None]
  - IMPAIRED HEALING [None]
  - INFECTION [None]
  - PURULENT DISCHARGE [None]
  - SWELLING FACE [None]
  - TOOTH EXTRACTION [None]
